FAERS Safety Report 13297276 (Version 1)
Quarter: 2017Q1

REPORT INFORMATION
  Report Type: Spontaneous
  Country: US (occurrence: US)
  Receive Date: 20170303
  Receipt Date: 20170303
  Transmission Date: 20170428
  Serious: No
  Sender: FDA-Public Use
  Company Number: None

PATIENT
  Age: 37 Year
  Sex: Female

DRUGS (2)
  1. MYCOPHENOLATE ORAL SUSP 200MG/ML ASCEND LABORATORIES, LLC A SUBSIDARY OF ALKEM LABORATOIES LTD [Suspect]
     Active Substance: MYCOPHENOLIC ACID
     Indication: COGNITIVE DISORDER
     Route: 048
     Dates: start: 20170113
  2. MYCOPHENOLATE ORAL SUSP 200MG/ML ASCEND LABORATORIES, LLC A SUBSIDARY OF ALKEM LABORATOIES LTD [Suspect]
     Active Substance: MYCOPHENOLIC ACID
     Indication: AUTONOMIC NEUROPATHY
     Route: 048
     Dates: start: 20170113

REACTIONS (2)
  - Nausea [None]
  - Vomiting [None]

NARRATIVE: CASE EVENT DATE: 20170301
